FAERS Safety Report 5901855-1 (Version None)
Quarter: 2008Q3

REPORT INFORMATION
  Report Type: 
  Country: None (occurrence: None)
  Receive Date: 20080929
  Receipt Date: 20080812
  Transmission Date: 20090109
  Serious: Yes (Death, Other)
  Sender: FDA-Public Use
  Company Number: JP-BAYER-200811106BYL

PATIENT
  Age: 45 Year
  Sex: Male

DRUGS (3)
  1. FLUDARA [Suspect]
     Indication: STEM CELL TRANSPLANT
     Dates: start: 20070901, end: 20070901
  2. CYCLOPHOSPHAMIDE [Suspect]
     Indication: STEM CELL TRANSPLANT
     Route: 065
  3. CYCLOPHOSPHAMIDE [Suspect]

REACTIONS (2)
  - SEPSIS [None]
  - SYSTEMIC CANDIDA [None]
